FAERS Safety Report 10419999 (Version 7)
Quarter: 2015Q3

REPORT INFORMATION
  Report Type: Report from Study
  Country: US (occurrence: US)
  Receive Date: 20140829
  Receipt Date: 20150904
  Transmission Date: 20151125
  Serious: Yes (Hospitalization, Other)
  Sender: FDA-Public Use
  Company Number: US-ACTELION-A-NJ2014-099557

PATIENT
  Age: 84 Year
  Sex: Female

DRUGS (3)
  1. ASPIRIN. [Concomitant]
     Active Substance: ASPIRIN
  2. ADCIRCA [Concomitant]
     Active Substance: TADALAFIL
  3. MACITENTAN [Suspect]
     Active Substance: MACITENTAN
     Indication: PULMONARY ARTERIAL HYPERTENSION
     Dosage: 10 MG, QD
     Route: 048
     Dates: start: 20140513

REACTIONS (9)
  - Mineral supplementation [Not Recovered/Not Resolved]
  - Ulcer [Unknown]
  - Anaemia [Unknown]
  - Transfusion [Not Recovered/Not Resolved]
  - Urinary tract infection bacterial [Unknown]
  - Gastrointestinal haemorrhage [Not Recovered/Not Resolved]
  - Arteriovenous malformation [Not Recovered/Not Resolved]
  - Haemoglobin decreased [Unknown]
  - Dyspnoea [Unknown]

NARRATIVE: CASE EVENT DATE: 201405
